FAERS Safety Report 17022433 (Version 2)
Quarter: 2019Q4

REPORT INFORMATION
  Report Type: Report from Study
  Country: BR (occurrence: BR)
  Receive Date: 20191112
  Receipt Date: 20191122
  Transmission Date: 20200122
  Serious: Yes (Death)
  Sender: FDA-Public Use
  Company Number: BR-UCBSA-2019047322

PATIENT
  Age: 43 Year
  Sex: Female
  Weight: 52 kg

DRUGS (1)
  1. CERTOLIZUMAB PEGOL CD [Suspect]
     Active Substance: CERTOLIZUMAB PEGOL
     Indication: CROHN^S DISEASE
     Dosage: 400 MILLIGRAM, EV 2 WEEKS(QOW)
     Route: 058
     Dates: start: 20191004, end: 20191018

REACTIONS (4)
  - Infection [Fatal]
  - Anaemia [Fatal]
  - Urinary tract infection [Fatal]
  - Sepsis [Fatal]

NARRATIVE: CASE EVENT DATE: 201910
